FAERS Safety Report 6876027-7 (Version None)
Quarter: 2010Q3

REPORT INFORMATION
  Report Type: 
  Country: None (occurrence: None)
  Receive Date: 20100727
  Receipt Date: 20100714
  Transmission Date: 20110219
  Serious: Yes (Hospitalization, Other)
  Sender: FDA-Public Use
  Company Number: JP-PFIZER INC-2010074355

PATIENT
  Age: 45 Year
  Sex: Male
  Weight: 82 kg

DRUGS (1)
  1. SUTENT [Suspect]
     Indication: RENAL CELL CARCINOMA
     Dosage: 50 MG, 1X/DAY
     Route: 048
     Dates: start: 20090627

REACTIONS (7)
  - DECREASED APPETITE [None]
  - DIARRHOEA [None]
  - LOSS OF CONSCIOUSNESS [None]
  - MYASTHENIA GRAVIS [None]
  - RESPIRATORY FAILURE [None]
  - SWELLING FACE [None]
  - THYROTOXIC CRISIS [None]
